FAERS Safety Report 8710474 (Version 2)
Quarter: 2012Q4

REPORT INFORMATION
  Report Type: 
  Country: ES (occurrence: ES)
  Receive Date: 20120807
  Receipt Date: 20120914
  Transmission Date: 20130627
  Serious: Yes (Hospitalization, Other)
  Sender: FDA-Public Use
  Company Number: ES-ELI_LILLY_AND_COMPANY-ES201208000108

PATIENT
  Sex: Female

DRUGS (1)
  1. FORSTEO [Suspect]
     Dosage: UNK
     Route: 065
     Dates: start: 201207

REACTIONS (1)
  - Femur fracture [Unknown]
